FAERS Safety Report 8884256 (Version 1)
Quarter: 2012Q4

REPORT INFORMATION
  Report Type: 
  Country: US (occurrence: US)
  Receive Date: 20121102
  Receipt Date: 20121102
  Transmission Date: 20130627
  Serious: Yes (Other)
  Sender: FDA-Public Use
  Company Number: US-PFIZER INC-2012268550

PATIENT
  Age: 43 Year
  Sex: Female
  Weight: 79.5 kg

DRUGS (24)
  1. METHYLPREDNISOLONE [Suspect]
     Indication: INFECTION UPPER RESPIRATORY
     Dosage: 4mg
     Dates: start: 20040920
  2. METHYLPREDNISOLONE [Suspect]
     Dosage: 4mg
     Dates: start: 20040929
  3. KETEK [Suspect]
     Indication: OTITIS
     Dosage: 400 mg, 2x/day
     Dates: start: 20040920, end: 20040929
  4. KETEK [Suspect]
     Indication: SINUSITIS
     Dosage: 400 mg, 2x/day
     Route: 048
     Dates: start: 20040929, end: 20041008
  5. FLONASE [Concomitant]
     Dosage: UNK
  6. MONTELUKAST SODIUM [Concomitant]
     Dosage: UNK
     Dates: start: 200412
  7. MIRALAX [Concomitant]
     Dosage: UNK
     Dates: start: 2003
  8. ATROPA BELLADONNA [Concomitant]
     Dosage: UNK
     Dates: start: 2003
  9. ELAVIL [Concomitant]
     Dosage: UNK
     Dates: start: 2003
  10. Z-PAK [Concomitant]
     Dosage: UNK
     Dates: start: 20040910
  11. IBUPROFEN [Concomitant]
     Dosage: UNK
     Dates: start: 200409
  12. TYLENOL SINUS [Concomitant]
     Dosage: UNK
     Dates: start: 200409
  13. SINUTAB II [Concomitant]
  14. DELSYM [Concomitant]
  15. VITAMINS NOS [Concomitant]
  16. LYRICA [Concomitant]
     Dosage: UNK
     Dates: start: 200702
  17. SKELAXIN [Concomitant]
  18. DIAZEPAM [Concomitant]
  19. PENICILLIN NOS [Concomitant]
  20. LEVAQUIN [Concomitant]
  21. JASMINE [Concomitant]
  22. ACIDOPHILUS ^ZYMA^ [Concomitant]
  23. HERBAL PREPARATION [Concomitant]
  24. ST MARY^S THISTLE [Concomitant]

REACTIONS (19)
  - Drug-induced liver injury [Unknown]
  - Hepatotoxicity [Unknown]
  - Liver function test abnormal [Unknown]
  - Jaundice [Unknown]
  - Pyrexia [Unknown]
  - Nuchal rigidity [Unknown]
  - Vomiting [Unknown]
  - Headache [Unknown]
  - Nausea [Recovered/Resolved]
  - Photophobia [Unknown]
  - Vision blurred [Unknown]
  - Myopia [Unknown]
  - Presbyopia [Unknown]
  - Hyperhidrosis [Unknown]
  - Fatigue [Unknown]
  - Asthenia [Unknown]
  - Lethargy [Unknown]
  - Somnolence [Unknown]
  - Decreased appetite [Unknown]
